FAERS Safety Report 6364525-4 (Version None)
Quarter: 2009Q3

REPORT INFORMATION
  Report Type: 
  Country: None (occurrence: None)
  Receive Date: 20090919
  Receipt Date: 20090827
  Transmission Date: 20100115
  Serious: No
  Sender: FDA-Public Use
  Company Number: US-ABBOTT-09P-163-0587355-00

PATIENT
  Sex: Male
  Weight: 86.26 kg

DRUGS (8)
  1. HUMIRA [Suspect]
     Indication: ANKYLOSING SPONDYLITIS
     Route: 058
     Dates: start: 20090501
  2. HUMIRA [Suspect]
     Indication: COLITIS ULCERATIVE
  3. PREDISONE [Concomitant]
     Indication: DRUG USE FOR UNKNOWN INDICATION
  4. LIALDA [Concomitant]
     Indication: COLITIS ULCERATIVE
  5. ACYCLOVIR [Concomitant]
     Indication: HERPES ZOSTER
  6. FML LIQUEFILM [Concomitant]
     Indication: INTRAOCULAR PRESSURE TEST ABNORMAL
     Dosage: 1 DROP IN RIGHT EYE EVERY MORNING
  7. COMBIGAN [Concomitant]
     Indication: INTRAOCULAR PRESSURE TEST ABNORMAL
     Dosage: EYE DROPS
  8. TRUSOPT [Concomitant]
     Indication: INTRAOCULAR PRESSURE TEST ABNORMAL

REACTIONS (5)
  - IMPAIRED HEALING [None]
  - INCREASED TENDENCY TO BRUISE [None]
  - INJECTION SITE SWELLING [None]
  - VISUAL IMPAIRMENT [None]
  - WEIGHT INCREASED [None]
